FAERS Safety Report 17744163 (Version 1)
Quarter: 2020Q2

REPORT INFORMATION
  Report Type: Spontaneous
  Country: DK (occurrence: DK)
  Receive Date: 20200505
  Receipt Date: 20200505
  Transmission Date: 20200714
  Serious: Yes (Hospitalization)
  Sender: FDA-Public Use
  Company Number: DK-TEVA-2020-DK-1230580

PATIENT
  Age: 71 Year
  Sex: Female

DRUGS (16)
  1. MIRTAZAPINE. [Concomitant]
     Active Substance: MIRTAZAPINE
     Indication: AGITATED DEPRESSION
     Dosage: UNIT DOSE : 15 MG
     Route: 048
     Dates: start: 20190604
  2. ENALAPRIL TEVA [Suspect]
     Active Substance: ENALAPRIL MALEATE
     Indication: CARDIAC FAILURE
     Dosage: UNIT DOSE : 2.5 MG
     Route: 048
     Dates: start: 20200302, end: 20200312
  3. PANTOPRAZOLE [Concomitant]
     Active Substance: PANTOPRAZOLE
     Indication: GASTROOESOPHAGEAL REFLUX DISEASE
     Dosage: UNIT DOSE ; 20 MG
     Route: 048
     Dates: start: 20140508
  4. THEO-DUR [Concomitant]
     Active Substance: THEOPHYLLINE ANHYDROUS
     Indication: LUNG DISORDER
     Dosage: UNIT DOSE : 600 MG
     Route: 048
     Dates: start: 20140502
  5. TRIMBOW [Concomitant]
     Active Substance: BECLOMETHASONE DIPROPIONATE\FORMOTEROL FUMARATE\GLYCOPYRROLATE
     Indication: CHRONIC OBSTRUCTIVE PULMONARY DISEASE
     Dosage: STRENGTH: 87 + 5 + 9 ?G, DOSAGE: 2 DOSE MORNING AND EVENING THE PATIENT TAKES IT EVEN WHEN SHE WANTS
     Route: 055
     Dates: start: 20191210
  6. SALBUTAMOL OG IPRATROPIUM [Concomitant]
     Indication: LUNG DISORDER
     Dosage: STRENGTH: 2.5 + 0.5 MG / ML, DOSAGE: 2.5 ML IF NEEDED EVERY 20 MINUTES
     Route: 055
     Dates: start: 20191212
  7. VENTOLINE [Concomitant]
     Active Substance: ALBUTEROL
     Indication: DYSPNOEA
     Dosage: DOSAGE: 2 BREATHS AS NEEDED AT MOST 4 TIMES DAILY, UNIT DOSE ; 0.2 MG
     Route: 055
     Dates: start: 20190424
  8. RISPERIDONE. [Concomitant]
     Active Substance: RISPERIDONE
     Indication: DEMENTIA
     Dosage: UNIT DOSE ; 0.5 MG
     Route: 048
     Dates: start: 20200220
  9. FUROSEMIDE. [Concomitant]
     Active Substance: FUROSEMIDE
     Indication: DIURETIC THERAPY
     Dosage: 5 DOSAGE FORMS DAILY;
     Route: 048
     Dates: start: 20191015
  10. PINEX [Concomitant]
     Indication: PAIN
     Dosage: DOSAGE: 1000 MG AS NEEDED NO MORE THAN 4 TIMES DAILY
     Route: 048
     Dates: start: 20140505
  11. SODIUM PICOSULFATE [Concomitant]
     Active Substance: SODIUM PICOSULFATE
     Indication: CONSTIPATION
     Dosage: DOSAGE: 10 DROPS AS NEEDED AT MOST 3 TIMES DAILY
     Route: 048
     Dates: start: 20190303
  12. VANCOMYCIN [Concomitant]
     Active Substance: VANCOMYCIN
     Indication: CLOSTRIDIUM DIFFICILE INFECTION
     Dosage: UNIT DOSE : 250 MG
     Route: 048
     Dates: start: 20191105
  13. DIPROSALIC [Concomitant]
     Active Substance: BETAMETHASONE DIPROPIONATE
     Indication: ECZEMA
     Dosage: STRENGTH: 0.5 + 30 MG / G DOSAGE: ONCE DAILY FOR CLEAR IMPROVEMENT THEN TWICE WEEKLY FOR ONE MONTH
     Route: 003
     Dates: start: 20200213
  14. THIAMINE. [Concomitant]
     Active Substance: THIAMINE
     Indication: VITAMIN SUPPLEMENTATION
     Dosage: UNIT DOSE : 300 MG
     Route: 048
     Dates: start: 20190701
  15. CARVEDILOL. [Concomitant]
     Active Substance: CARVEDILOL
     Indication: CARDIAC FAILURE
     Dosage: DOSAGE: 1/2 TABLET DAILY FOR 2 WEEKS THEN 1/2 TABLET MORNING AND EVENING
     Route: 048
     Dates: start: 20200224
  16. CETIRIZINE [Concomitant]
     Active Substance: CETIRIZINE HYDROCHLORIDE
     Indication: SEASONAL ALLERGY
     Dosage: UNIT DOSE : 10 MG
     Route: 048
     Dates: start: 20190302

REACTIONS (2)
  - Chronic kidney disease [Recovered/Resolved]
  - Hyperkalaemia [Recovered/Resolved]

NARRATIVE: CASE EVENT DATE: 20200312
